FAERS Safety Report 7115199-6 (Version None)
Quarter: 2010Q4

REPORT INFORMATION
  Report Type: 
  Country: None (occurrence: None)
  Receive Date: 20101122
  Receipt Date: 20101116
  Transmission Date: 20110411
  Serious: Yes (Death, Other)
  Sender: FDA-Public Use
  Company Number: US-CELGENEUS-163-21880-10092522

PATIENT
  Sex: Male

DRUGS (5)
  1. REVLIMID [Suspect]
     Indication: MYELODYSPLASTIC SYNDROME
     Route: 048
     Dates: start: 20100720, end: 20100828
  2. SYNTHROID [Concomitant]
     Indication: HYPOTHYROIDISM
     Route: 048
     Dates: start: 20000101, end: 20101111
  3. FOLIC ACID [Concomitant]
     Indication: ANAEMIA
     Route: 048
     Dates: start: 20100301, end: 20101111
  4. BACLOFEN [Concomitant]
     Indication: HICCUPS
     Route: 048
     Dates: start: 20101026, end: 20101111
  5. TRANSFUSION [Concomitant]
     Indication: ANAEMIA
     Route: 065

REACTIONS (6)
  - ANAEMIA [None]
  - ATRIAL FIBRILLATION [None]
  - DEATH [None]
  - FATIGUE [None]
  - MUSCULOSKELETAL STIFFNESS [None]
  - OROPHARYNGEAL PAIN [None]
